FAERS Safety Report 18462958 (Version 3)
Quarter: 2022Q2

REPORT INFORMATION
  Report Type: Spontaneous
  Country: US (occurrence: US)
  Receive Date: 20201104
  Receipt Date: 20220510
  Transmission Date: 20220720
  Serious: Yes (Disabling)
  Sender: FDA-Public Use
  Company Number: US-PFIZER INC-2020427011

PATIENT
  Age: 60 Year
  Sex: Female

DRUGS (2)
  1. IBRANCE [Suspect]
     Active Substance: PALBOCICLIB
     Dosage: 125 MG
     Dates: start: 20190401
  2. IBRANCE [Suspect]
     Active Substance: PALBOCICLIB
     Dosage: 125 MG
     Dates: start: 20190406

REACTIONS (6)
  - Wheelchair user [Unknown]
  - Frequent bowel movements [Unknown]
  - Pollakiuria [Unknown]
  - Product dose omission issue [Unknown]
  - Vision blurred [Unknown]
  - Asthenia [Unknown]
